FAERS Safety Report 11754257 (Version 2)
Quarter: 2015Q4

REPORT INFORMATION
  Report Type: Report from Study
  Country: FR (occurrence: FR)
  Receive Date: 20151119
  Receipt Date: 20151130
  Transmission Date: 20160304
  Serious: Yes (Hospitalization, Other)
  Sender: FDA-Public Use
  Company Number: FR-BRISTOL-MYERS SQUIBB COMPANY-BMS-2015-073237

PATIENT
  Age: 57 Year
  Sex: Male
  Weight: 49 kg

DRUGS (3)
  1. NIVOLUMAB [Suspect]
     Active Substance: NIVOLUMAB
     Indication: NON-SMALL CELL LUNG CANCER
     Dosage: 186 MG, UNK
     Route: 042
     Dates: start: 20150727
  2. NIVOLUMAB [Suspect]
     Active Substance: NIVOLUMAB
     Dosage: UNK MG, UNK
     Route: 042
     Dates: start: 20150807
  3. NIVOLUMAB [Suspect]
     Active Substance: NIVOLUMAB
     Dosage: 147 UNK, UNK
     Route: 042
     Dates: start: 20150831

REACTIONS (5)
  - Respiratory depression [Unknown]
  - General physical health deterioration [Unknown]
  - Malignant neoplasm progression [Unknown]
  - Acute coronary syndrome [Unknown]
  - Pulmonary hypertension [Unknown]

NARRATIVE: CASE EVENT DATE: 20150810
